FAERS Safety Report 7011864-X (Version None)
Quarter: 2010Q3

REPORT INFORMATION
  Report Type: 
  Country: None (occurrence: None)
  Receive Date: 20100924
  Receipt Date: 20100920
  Transmission Date: 20110219
  Serious: Yes (Death)
  Sender: FDA-Public Use
  Company Number: BR-ASTRAZENECA-2010SE44197

PATIENT
  Age: 969 Month
  Sex: Male
  Weight: 80 kg

DRUGS (3)
  1. SEROQUEL [Suspect]
     Indication: DEMENTIA ALZHEIMER'S TYPE
     Dosage: UNKNOWN DOSE ONCE DAILY
     Route: 048
     Dates: start: 20100501
  2. INSULIN [Concomitant]
     Indication: DIABETES MELLITUS
  3. ARADOIS [Concomitant]
     Indication: HYPERTENSION

REACTIONS (6)
  - HYPERTENSION [None]
  - HYPOXIA [None]
  - OFF LABEL USE [None]
  - PNEUMONIA [None]
  - SEPSIS [None]
  - SEPTIC SHOCK [None]
